FAERS Safety Report 6983339-5 (Version None)
Quarter: 2010Q3

REPORT INFORMATION
  Report Type: 
  Country: None (occurrence: None)
  Receive Date: 20100910
  Receipt Date: 20100826
  Transmission Date: 20110219
  Serious: Yes (Hospitalization, Other)
  Sender: FDA-Public Use
  Company Number: 2010060018

PATIENT
  Age: 40 Year
  Sex: Male
  Weight: 106.5953 kg

DRUGS (7)
  1. EDLUAR [Suspect]
     Indication: INITIAL INSOMNIA
     Dosage: (10 MG, Q HS), SUBLINGUAL
     Route: 060
     Dates: start: 20100101, end: 20100603
  2. EDLUAR [Suspect]
     Indication: MIDDLE INSOMNIA
     Dosage: (10 MG, Q HS), SUBLINGUAL
     Route: 060
     Dates: start: 20100101, end: 20100603
  3. ZOLPIDEM [Suspect]
     Indication: INITIAL INSOMNIA
     Dosage: (Q HS), ORAL
     Route: 048
     Dates: start: 20100501, end: 20100603
  4. ZOLPIDEM [Suspect]
     Indication: MIDDLE INSOMNIA
     Dosage: (Q HS), ORAL
     Route: 048
     Dates: start: 20100501, end: 20100603
  5. SOMA [Suspect]
     Indication: BACK PAIN
     Dosage: ORAL
     Route: 048
     Dates: end: 20100603
  6. HYDROCODONE BITARTRATE [Suspect]
     Indication: BACK PAIN
     Dosage: ORAL
     Route: 048
     Dates: end: 20100603
  7. ELAVIL [Suspect]
     Indication: BACK PAIN
     Dosage: ORAL
     Route: 048
     Dates: end: 20100603

REACTIONS (15)
  - ABNORMAL BEHAVIOUR [None]
  - AMNESIA [None]
  - BACK PAIN [None]
  - DEVICE DISLOCATION [None]
  - DEVICE INEFFECTIVE [None]
  - DRUG INEFFECTIVE [None]
  - HALLUCINATION [None]
  - IMPAIRED WORK ABILITY [None]
  - INCORRECT DOSE ADMINISTERED [None]
  - LOSS OF CONSCIOUSNESS [None]
  - LOSS OF EMPLOYMENT [None]
  - NECK PAIN [None]
  - ROAD TRAFFIC ACCIDENT [None]
  - SOMNOLENCE [None]
  - UNRESPONSIVE TO STIMULI [None]
